FAERS Safety Report 14018135 (Version 2)
Quarter: 2018Q2

REPORT INFORMATION
  Report Type: Spontaneous
  Country: US (occurrence: US)
  Receive Date: 20170928
  Receipt Date: 20180608
  Transmission Date: 20180711
  Serious: Yes (Death)
  Sender: FDA-Public Use
  Company Number: US-CIPLA LTD.-2017US17388

PATIENT

DRUGS (6)
  1. FLUOROURACIL. [Suspect]
     Active Substance: FLUOROURACIL
     Dosage: 2400 MG/M2, OVER 46 HOURS, EVERY 14 DAYS
  2. LEUCOVORIN                         /00566701/ [Suspect]
     Active Substance: LEUCOVORIN
     Indication: ADENOCARCINOMA OF COLON
     Dosage: 400 MG/M2, EVERY 14 DAYS, 11 FOLFOX6 CYCLES
     Route: 040
  3. OXALIPLATIN. [Suspect]
     Active Substance: OXALIPLATIN
     Dosage: BEGINNING WITH THE FIFTH CYCLE, THE OXALIPLATIN DOSE WAS REDUCED TO 65 MG/M2
     Route: 042
  4. LISINOPRIL. [Suspect]
     Active Substance: LISINOPRIL
     Indication: PRODUCT USED FOR UNKNOWN INDICATION
     Dosage: UNK
     Route: 065
  5. FLUOROURACIL. [Suspect]
     Active Substance: FLUOROURACIL
     Indication: ADENOCARCINOMA OF COLON
     Dosage: 400 MG/M2, ON DAY 1, EVERY 14 DAYS, 11 FOLFOX6 CYCLES
     Route: 040
  6. OXALIPLATIN. [Suspect]
     Active Substance: OXALIPLATIN
     Indication: ADENOCARCINOMA OF COLON
     Dosage: 85 MG/M2, 11 FOLFOX6 CYCLES, EVERY 14DAYS
     Route: 042

REACTIONS (5)
  - Toxicity to various agents [Fatal]
  - Eosinophilic pneumonia [None]
  - Fatigue [Recovered/Resolved]
  - Diffuse alveolar damage [Fatal]
  - Cough [Recovered/Resolved]
